FAERS Safety Report 5782560-1 (Version None)
Quarter: 2008Q2

REPORT INFORMATION
  Report Type: 
  Country: None (occurrence: None)
  Receive Date: 20080623
  Receipt Date: 20080609
  Transmission Date: 20081010
  Serious: Yes (Other)
  Sender: FDA-Public Use
  Company Number: DE-GENENTECH-262748

PATIENT
  Sex: Female

DRUGS (4)
  1. HERCEPTIN [Suspect]
     Indication: THERAPEUTIC PROCEDURE
     Dosage: 8 MG, Q3W
     Route: 042
     Dates: start: 20070308, end: 20080219
  2. AROMASIN [Suspect]
     Indication: THERAPEUTIC PROCEDURE
     Dosage: 1 UNK, QD
     Route: 048
     Dates: start: 20070101
  3. LISINOPRIL [Concomitant]
     Indication: DRUG USE FOR UNKNOWN INDICATION
  4. LISINOPRIL [Concomitant]
     Indication: DRUG USE FOR UNKNOWN INDICATION
     Dates: start: 20000101

REACTIONS (1)
  - POLYCYTHAEMIA [None]
